FAERS Safety Report 14820009 (Version 1)
Quarter: 2018Q2

REPORT INFORMATION
  Report Type: Spontaneous
  Country: US (occurrence: US)
  Receive Date: 20180427
  Receipt Date: 20180427
  Transmission Date: 20180711
  Serious: Yes (Other)
  Sender: FDA-Public Use
  Company Number: US-LEXICON PHARMACEUTICALS, INC-18-1606-00445

PATIENT
  Age: 45 Year
  Sex: Female

DRUGS (4)
  1. OCTREOTIDE. [Concomitant]
     Active Substance: OCTREOTIDE
  2. TELOTRISTAT ETHYL [Suspect]
     Active Substance: TELOTRISTAT ETHYL
     Indication: CARCINOID SYNDROME
     Route: 048
     Dates: start: 20180412, end: 20180414
  3. AFINITOR [Concomitant]
     Active Substance: EVEROLIMUS
  4. TRAMADOL. [Concomitant]
     Active Substance: TRAMADOL

REACTIONS (1)
  - Critical illness [Unknown]

NARRATIVE: CASE EVENT DATE: 201804
